FAERS Safety Report 10463397 (Version 1)
Quarter: 2014Q3

REPORT INFORMATION
  Report Type: Spontaneous
  Country: US (occurrence: None)
  Receive Date: 20140918
  Receipt Date: 20140918
  Transmission Date: 20150326
  Serious: Yes (Life-Threatening, Hospitalization, Disabling, Other)
  Sender: FDA-Public Use
  Company Number: None

PATIENT
  Age: 22 Year
  Sex: Female
  Weight: 145.15 kg

DRUGS (5)
  1. CARDIZEM [Concomitant]
     Active Substance: DILTIAZEM HYDROCHLORIDE
  2. METFORMIN [Concomitant]
     Active Substance: METFORMIN HYDROCHLORIDE
  3. LAMOTRIGINE. [Suspect]
     Active Substance: LAMOTRIGINE
     Indication: BIPOLAR DISORDER
     Dosage: 100MG, #3D, 1 TABLET A DAY, BY MOUTH
     Route: 048
     Dates: start: 20140812, end: 20140827
  4. LAMOTRIGINE. [Suspect]
     Active Substance: LAMOTRIGINE
     Indication: ANXIETY DISORDER
     Dosage: 100MG, #3D, 1 TABLET A DAY, BY MOUTH
     Route: 048
     Dates: start: 20140812, end: 20140827
  5. CLARITIN [Concomitant]
     Active Substance: LORATADINE

REACTIONS (5)
  - Dyspnoea [None]
  - Chest pain [None]
  - Headache [None]
  - Pyrexia [None]
  - Rash generalised [None]

NARRATIVE: CASE EVENT DATE: 20140826
